FAERS Safety Report 8999408 (Version 2)
Quarter: 2013Q3

REPORT INFORMATION
  Report Type: Spontaneous
  Country: FR (occurrence: FR)
  Receive Date: 20130103
  Receipt Date: 20130916
  Transmission Date: 20140515
  Serious: Yes (Hospitalization, Other)
  Sender: FDA-Public Use
  Company Number: FR-ELI_LILLY_AND_COMPANY-FR201212007385

PATIENT
  Age: 88 Year
  Sex: Female

DRUGS (1)
  1. FORSTEO [Suspect]
     Indication: OSTEOPOROSIS
     Dosage: 20 UG, QD
     Route: 058
     Dates: start: 20101101

REACTIONS (4)
  - Gastrointestinal fistula [Recovered/Resolved]
  - Femoral neck fracture [Unknown]
  - Fall [Unknown]
  - Herpes zoster [Recovered/Resolved with Sequelae]
